FAERS Safety Report 14444310 (Version 1)
Quarter: 2018Q1

REPORT INFORMATION
  Report Type: Spontaneous
  Country: US (occurrence: US)
  Receive Date: 20180125
  Receipt Date: 20180125
  Transmission Date: 20180509
  Serious: Yes (Disabling)
  Sender: FDA-Public Use
  Company Number: None

PATIENT
  Sex: Female
  Weight: 94.95 kg

DRUGS (9)
  1. METHYLPHENIDATE ER 36 MG GENERIC [Suspect]
     Active Substance: METHYLPHENIDATE HYDROCHLORIDE
     Indication: ATTENTION DEFICIT/HYPERACTIVITY DISORDER
     Dosage: ?          QUANTITY:30 CAPSULE(S);?
     Route: 048
     Dates: start: 20080601, end: 20170914
  2. CLONAZEPAM. [Concomitant]
     Active Substance: CLONAZEPAM
  3. LISINOPRIL. [Concomitant]
     Active Substance: LISINOPRIL
  4. LINZESS [Concomitant]
     Active Substance: LINACLOTIDE
  5. LEVOTHYROXINE. [Concomitant]
     Active Substance: LEVOTHYROXINE
  6. VITAMIN D [Concomitant]
     Active Substance: CHOLECALCIFEROL
  7. SIMVASTATIN. [Concomitant]
     Active Substance: SIMVASTATIN
  8. ASPIRIN. [Concomitant]
     Active Substance: ASPIRIN
  9. MULTIMINERAL-MULTIVITAMIN [Concomitant]

REACTIONS (5)
  - Fall [None]
  - Wrist fracture [None]
  - Impaired work ability [None]
  - Crying [None]
  - Cognitive disorder [None]

NARRATIVE: CASE EVENT DATE: 20170930
